FAERS Safety Report 8176102-3 (Version None)
Quarter: 2012Q1

REPORT INFORMATION
  Report Type: 
  Country: None (occurrence: None)
  Receive Date: 20120301
  Receipt Date: 20120220
  Transmission Date: 20120608
  Serious: Yes (Hospitalization, Disabling)
  Sender: FDA-Public Use
  Company Number: FR-BRISTOL-MYERS SQUIBB COMPANY-16412454

PATIENT
  Age: 54 Year
  Sex: Male

DRUGS (3)
  1. RITONAVIR [Suspect]
     Indication: ACQUIRED IMMUNODEFICIENCY SYNDROME
     Dates: start: 20051206, end: 20090311
  2. REYATAZ [Suspect]
     Indication: ACQUIRED IMMUNODEFICIENCY SYNDROME
     Dosage: INITIALLY GIVEN 150MG TWICE DAILY (FROM 06-DEC-2005) THEN CHANGED TO 200MG TWICE DAILY (11-MAR-2009)
     Route: 048
     Dates: start: 20051206
  3. ABACAVIR SULFATE/LAMIVUDINE [Suspect]
     Indication: ACQUIRED IMMUNODEFICIENCY SYNDROME
     Dosage: 1DF:1 INTAKE
     Route: 048
     Dates: start: 20051206

REACTIONS (2)
  - CEREBROVASCULAR ACCIDENT [None]
  - DYSLIPIDAEMIA [None]
